FAERS Safety Report 9924545 (Version 2)
Quarter: 2014Q1

REPORT INFORMATION
  Report Type: Spontaneous
  Country: US (occurrence: US)
  Receive Date: 20140226
  Receipt Date: 20140319
  Transmission Date: 20141002
  Serious: No
  Sender: FDA-Public Use
  Company Number: US-PFIZER INC-2014054470

PATIENT
  Age: 66 Year
  Sex: Female
  Weight: 62.59 kg

DRUGS (5)
  1. LYRICA [Suspect]
     Indication: FIBROMYALGIA
     Dosage: 50 MG, 3X/DAY
     Route: 048
     Dates: start: 20140223
  2. ATIVAN [Concomitant]
     Dosage: UNK
  3. SIMVASTATIN [Concomitant]
     Indication: BLOOD CHOLESTEROL INCREASED
     Dosage: UNK
  4. METOPROLOL [Concomitant]
     Indication: HYPERTENSION
     Dosage: UNK
  5. OXYIR [Concomitant]
     Dosage: UNK

REACTIONS (13)
  - Hypopnoea [Unknown]
  - Feeling abnormal [Unknown]
  - Fatigue [Unknown]
  - Lethargy [Unknown]
  - Asthenia [Unknown]
  - Nausea [Unknown]
  - Neuropathy peripheral [Not Recovered/Not Resolved]
  - Drug ineffective [Not Recovered/Not Resolved]
  - Hypoaesthesia [Not Recovered/Not Resolved]
  - Paraesthesia [Not Recovered/Not Resolved]
  - Hypokinesia [Not Recovered/Not Resolved]
  - Pain [Not Recovered/Not Resolved]
  - Dizziness [Not Recovered/Not Resolved]
